FAERS Safety Report 8459217-1 (Version None)
Quarter: 2012Q2

REPORT INFORMATION
  Report Type: 
  Country: None (occurrence: None)
  Receive Date: 20120622
  Receipt Date: 20120612
  Transmission Date: 20120825
  Serious: Yes (Hospitalization)
  Sender: FDA-Public Use
  Company Number: CA-GLAXOSMITHKLINE-A0981845A

PATIENT
  Age: 31 Year
  Sex: Male
  Weight: 60.5 kg

DRUGS (1)
  1. NICORETTE [Suspect]
     Indication: SMOKING CESSATION THERAPY
     Dosage: 4MG TWICE PER DAY
     Route: 002
     Dates: start: 20120609, end: 20120609

REACTIONS (4)
  - HYPERSENSITIVITY [None]
  - SWELLING FACE [None]
  - ANGINA PECTORIS [None]
  - DYSPNOEA [None]
